FAERS Safety Report 4709135-7 (Version None)
Quarter: 2005Q3

REPORT INFORMATION
  Report Type: 
  Country: None (occurrence: None)
  Receive Date: 20050708
  Receipt Date: 20050629
  Transmission Date: 20060218
  Serious: Yes (Hospitalization)
  Sender: FDA-Public Use
  Company Number: US-JNJFOC-20050607320

PATIENT
  Age: 75 Year
  Sex: Male
  Weight: 90 kg

DRUGS (9)
  1. LEVOFLOXACIN [Suspect]
     Indication: URINARY TRACT INFECTION
  2. ASPIRIN [Interacting]
     Indication: DRUG USE FOR UNKNOWN INDICATION
  3. DONEPEZIL HCL [Interacting]
  4. CITALOPRAM [Interacting]
     Indication: DRUG USE FOR UNKNOWN INDICATION
  5. DOXAZOSIN [Concomitant]
  6. FOLATE [Concomitant]
  7. GABAPENTIN [Concomitant]
  8. DIVALPROEX SODIUM [Concomitant]
  9. RANITIDINE [Concomitant]

REACTIONS (2)
  - CONVULSION [None]
  - DRUG INTERACTION [None]
